FAERS Safety Report 18629054 (Version 1)
Quarter: 2020Q4

REPORT INFORMATION
  Report Type: Spontaneous
  Country: FR (occurrence: FR)
  Receive Date: 20201217
  Receipt Date: 20201217
  Transmission Date: 20210114
  Serious: Yes (Hospitalization)
  Sender: FDA-Public Use
  Company Number: FR-009507513-2012FRA006854

PATIENT
  Age: 58 Year
  Sex: Male

DRUGS (3)
  1. RIBAVIRIN. [Suspect]
     Active Substance: RIBAVIRIN
     Dosage: UNK
     Route: 048
     Dates: start: 20140718, end: 20141013
  2. SOFOSBUVIR [Concomitant]
     Active Substance: SOFOSBUVIR
     Dosage: UNK
     Dates: start: 20140718, end: 20141013
  3. OLYSIO [Concomitant]
     Active Substance: SIMEPREVIR
     Dosage: UNK
     Dates: start: 20140718, end: 20141013

REACTIONS (1)
  - Hepatocellular carcinoma [Unknown]

NARRATIVE: CASE EVENT DATE: 20190401
